FAERS Safety Report 11448990 (Version 2)
Quarter: 2015Q4

REPORT INFORMATION
  Report Type: Report from Study
  Country: AU (occurrence: AU)
  Receive Date: 20150902
  Receipt Date: 20151113
  Transmission Date: 20160304
  Serious: Yes (Other)
  Sender: FDA-Public Use
  Company Number: AU-REGENERON PHARMACEUTICALS, INC.-2015-11935

PATIENT

DRUGS (1)
  1. EYLEA [Suspect]
     Active Substance: AFLIBERCEPT
     Indication: NEOVASCULAR AGE-RELATED MACULAR DEGENERATION
     Dosage: 2 MG, 4 WEEKLY
     Route: 031
     Dates: start: 20150420

REACTIONS (6)
  - Maculopathy [Unknown]
  - Visual impairment [Unknown]
  - Ocular discomfort [Unknown]
  - Balance disorder [Unknown]
  - Polyarthritis [Unknown]
  - Off label use [Unknown]
